FAERS Safety Report 6305830-7 (Version None)
Quarter: 2009Q3

REPORT INFORMATION
  Report Type: 
  Country: None (occurrence: None)
  Receive Date: 20090812
  Receipt Date: 20071003
  Transmission Date: 20100115
  Serious: Yes (Other)
  Sender: FDA-Public Use
  Company Number: US-ASTRAZENECA-2006UW22917

PATIENT
  Age: 16706 Day
  Sex: Female
  Weight: 112 kg

DRUGS (11)
  1. SEROQUEL [Suspect]
     Indication: DEPRESSION
     Route: 048
     Dates: start: 20030501
  2. SEROQUEL [Suspect]
     Indication: BIPOLAR DISORDER
     Route: 048
     Dates: start: 20030501
  3. SEROQUEL [Suspect]
     Indication: INSOMNIA
     Route: 048
     Dates: start: 20030501
  4. SEROQUEL [Suspect]
     Dosage: 100-400 MG
     Route: 048
     Dates: start: 20030821, end: 20060907
  5. SEROQUEL [Suspect]
     Dosage: 100-400 MG
     Route: 048
     Dates: start: 20030821, end: 20060907
  6. SEROQUEL [Suspect]
     Dosage: 100-400 MG
     Route: 048
     Dates: start: 20030821, end: 20060907
  7. HYDROCODONE BITARTRATE + ACETAMINOPHEN [Concomitant]
     Dosage: 10/650 MG FOUR TIMES A DAY
     Dates: start: 20030528
  8. SYNTHROID [Concomitant]
     Dosage: 25-125 MCG
     Dates: start: 20030813
  9. PREVACID [Concomitant]
     Dosage: 30-60 MG
     Route: 048
     Dates: start: 20030915
  10. ELAVIL [Concomitant]
     Dosage: 50-100 MG
     Dates: start: 20030227
  11. NEURONTIN [Concomitant]
     Indication: NEURALGIA
     Dosage: 160-300 MG
     Dates: start: 20030227

REACTIONS (4)
  - AUTONOMIC NEUROPATHY [None]
  - BLOOD GLUCOSE INCREASED [None]
  - DIABETES MELLITUS [None]
  - TYPE 2 DIABETES MELLITUS [None]
